FAERS Safety Report 4874202-4 (Version None)
Quarter: 2006Q1

REPORT INFORMATION
  Report Type: 
  Country: None (occurrence: None)
  Receive Date: 20060104
  Receipt Date: 20060104
  Transmission Date: 20060701
  Serious: Yes (Life-Threatening, Hospitalization)
  Sender: FDA-Public Use
  Company Number: None

PATIENT
  Age: 48 Year
  Sex: Female
  Weight: 74.8 kg

DRUGS (7)
  1. LANTUS [Suspect]
     Indication: DIABETES MELLITUS NON-INSULIN-DEPENDENT
     Dosage: 36 UNITS, 56 U AM, PM
     Dates: end: 20000829
  2. SEROQUEL [Concomitant]
  3. CELEXA [Concomitant]
  4. WELLBUTRIN [Concomitant]
  5. LORTAB [Concomitant]
  6. XANAX [Concomitant]
  7. ZANTA [Concomitant]

REACTIONS (3)
  - CONVULSION [None]
  - HYPOGLYCAEMIA [None]
  - LOSS OF CONSCIOUSNESS [None]
